FAERS Safety Report 14462270 (Version 1)
Quarter: 2018Q1

REPORT INFORMATION
  Report Type: Other
  Country: CN (occurrence: CN)
  Receive Date: 20180130
  Receipt Date: 20180130
  Transmission Date: 20180509
  Serious: Yes (Other)
  Sender: FDA-Public Use
  Company Number: CN-GEHC-2018CSU000351

PATIENT

DRUGS (1)
  1. VISIPAQUE [Suspect]
     Active Substance: IODIXANOL
     Indication: PRODUCT USED FOR UNKNOWN INDICATION
     Dosage: 100 ML, SINGLE
     Route: 042
     Dates: start: 20171020, end: 20171020

REACTIONS (3)
  - Rash [Recovered/Resolved]
  - Pruritus [Recovered/Resolved]
  - Dermatitis allergic [Recovered/Resolved]

NARRATIVE: CASE EVENT DATE: 20171020
